FAERS Safety Report 5911854-1 (Version None)
Quarter: 2008Q4

REPORT INFORMATION
  Report Type: 
  Country: None (occurrence: None)
  Receive Date: 20081008
  Receipt Date: 20080930
  Transmission Date: 20090506
  Serious: Yes (Death, Other)
  Sender: FDA-Public Use
  Company Number: JP-BAYER-JP-2006-012081

PATIENT
  Age: 78 Year
  Sex: Female
  Weight: 51 kg

DRUGS (18)
  1. FLUDARA [Suspect]
     Indication: CHRONIC LYMPHOCYTIC LEUKAEMIA
     Dosage: TOTAL DAILY DOSE: 29 MG  UNIT DOSE: 50 MG
     Route: 042
     Dates: start: 20050708, end: 20050712
  2. FLUDARA [Suspect]
     Dosage: TOTAL DAILY DOSE: 29 MG  UNIT DOSE: 50 MG
     Route: 042
     Dates: start: 20050815, end: 20050819
  3. FLUDARA [Suspect]
     Dosage: TOTAL DAILY DOSE: 29 MG  UNIT DOSE: 50 MG
     Route: 042
     Dates: start: 20050912, end: 20050919
  4. FLUDARA [Suspect]
     Dosage: TOTAL DAILY DOSE: 29 MG  UNIT DOSE: 50 MG
     Route: 042
     Dates: start: 20051212, end: 20051216
  5. FLUDARA [Suspect]
     Dosage: TOTAL DAILY DOSE: 29 MG  UNIT DOSE: 50 MG
     Route: 042
     Dates: start: 20051114, end: 20051118
  6. FLUDARA [Suspect]
     Dosage: TOTAL DAILY DOSE: 29 MG  UNIT DOSE: 50 MG
     Route: 042
     Dates: start: 20051017, end: 20051021
  7. ENDOXAN [Suspect]
     Indication: CHRONIC LYMPHOCYTIC LEUKAEMIA TRANSFORMATION
     Dosage: AS USED: 780 MG
     Route: 042
     Dates: start: 20061225, end: 20070606
  8. ADRIACIN [Suspect]
     Indication: CHRONIC LYMPHOCYTIC LEUKAEMIA TRANSFORMATION
     Dosage: AS USED: 50 MG
     Route: 042
     Dates: start: 20061225, end: 20070606
  9. ONCOVIN [Suspect]
     Indication: CHRONIC LYMPHOCYTIC LEUKAEMIA TRANSFORMATION
     Dosage: AS USED: 2 MG
     Route: 042
     Dates: start: 20061225, end: 20070606
  10. FLUITRAN [Concomitant]
     Indication: HYPERTENSION
     Dosage: TOTAL DAILY DOSE: 2 MG  UNIT DOSE: 2 MG
     Route: 048
     Dates: start: 20020702
  11. AMLODIPINE [Concomitant]
     Indication: HYPERTENSION
     Dosage: TOTAL DAILY DOSE: 5 MG  UNIT DOSE: 5 MG
     Route: 048
     Dates: start: 20020702
  12. BLOPRESS [Concomitant]
     Indication: HYPERTENSION
     Dosage: TOTAL DAILY DOSE: 4 MG  UNIT DOSE: 4 MG
     Route: 048
     Dates: start: 20020702
  13. COTRIM [Concomitant]
     Indication: ANTIFUNGAL PROPHYLAXIS
     Dosage: TOTAL DAILY DOSE: 1 DF
     Route: 048
     Dates: start: 20050708, end: 20080626
  14. FAMOTIDINE [Concomitant]
     Indication: PROPHYLAXIS AGAINST GASTROINTESTINAL ULCER
     Dosage: TOTAL DAILY DOSE: 40 MG  UNIT DOSE: 40 MG
     Route: 048
     Dates: start: 20050708, end: 20051216
  15. ZYLORIC [Concomitant]
     Indication: HYPERURICAEMIA
     Dosage: TOTAL DAILY DOSE: 200 MG
     Route: 048
     Dates: start: 20020702
  16. FUNGIZONE [Concomitant]
     Indication: ANTIFUNGAL PROPHYLAXIS
     Dosage: TOTAL DAILY DOSE: 8 ML  UNIT DOSE: 8 ML
     Route: 048
     Dates: start: 20050708
  17. RITUXAN [Concomitant]
     Indication: CHRONIC LYMPHOCYTIC LEUKAEMIA TRANSFORMATION
  18. PREDONINE [Concomitant]
     Indication: CHRONIC LYMPHOCYTIC LEUKAEMIA TRANSFORMATION

REACTIONS (9)
  - ANAEMIA [None]
  - CHRONIC LYMPHOCYTIC LEUKAEMIA TRANSFORMATION [None]
  - HYPERBILIRUBINAEMIA [None]
  - HYPONATRAEMIA [None]
  - LEUKOPENIA [None]
  - LYMPHOPENIA [None]
  - MONOCYTE COUNT INCREASED [None]
  - MYELODYSPLASTIC SYNDROME [None]
  - RENAL DISORDER [None]
